FAERS Safety Report 8482312-8 (Version None)
Quarter: 2012Q3

REPORT INFORMATION
  Report Type: 
  Country: None (occurrence: None)
  Receive Date: 20120702
  Receipt Date: 20120620
  Transmission Date: 20120928
  Serious: Yes (Other)
  Sender: FDA-Public Use
  Company Number: US-ROCHE-1080638

PATIENT
  Sex: Female
  Weight: 54.48 kg

DRUGS (2)
  1. MARINOL (UNITED STATES) [Concomitant]
     Route: 048
  2. XELODA [Suspect]
     Indication: HEPATIC NEOPLASM MALIGNANT
     Route: 048
     Dates: start: 20120523

REACTIONS (5)
  - ABDOMINAL CAVITY DRAINAGE [None]
  - ABDOMINAL PAIN UPPER [None]
  - PLATELET COUNT DECREASED [None]
  - DECREASED APPETITE [None]
  - NAUSEA [None]
